FAERS Safety Report 15863747 (Version 1)
Quarter: 2019Q1

REPORT INFORMATION
  Report Type: Spontaneous
  Country: GB (occurrence: GB)
  Receive Date: 20190124
  Receipt Date: 20190124
  Transmission Date: 20190417
  Serious: Yes (Other)
  Sender: FDA-Public Use
  Company Number: GB-009507513-1901GBR005894

PATIENT
  Age: 65 Year
  Sex: Male
  Weight: 220 kg

DRUGS (7)
  1. ACETAMINOPHEN. [Concomitant]
     Active Substance: ACETAMINOPHEN
  2. FELDENE [Concomitant]
     Active Substance: PIROXICAM
  3. NAPROXEN. [Concomitant]
     Active Substance: NAPROXEN
     Indication: GOUT
     Dosage: DO NOT USE FOR MORE THAN 1 WEEK AT A TIME.
  4. ANTIMICROBIAL (UNSPECIFIED) [Concomitant]
     Active Substance: UNSPECIFIED INGREDIENT
  5. LOSARTAN POTASSIUM. [Suspect]
     Active Substance: LOSARTAN POTASSIUM
     Indication: HYPERTENSION
     Dosage: 100 MILLIGRAM,,UNK
     Route: 048
     Dates: start: 20160101
  6. TESTOSTERONE. [Concomitant]
     Active Substance: TESTOSTERONE
     Dosage: 1 DOSAGE FORM
  7. INDAPAMIDE. [Suspect]
     Active Substance: INDAPAMIDE
     Dosage: 2.5 MILLIGRAM
     Route: 048
     Dates: start: 20180101, end: 20181201

REACTIONS (22)
  - Sleep disorder [Unknown]
  - Arthralgia [Unknown]
  - Catarrh [Unknown]
  - Sneezing [Unknown]
  - Abdominal pain [Unknown]
  - Rhinorrhoea [Unknown]
  - Stress [Unknown]
  - Depression suicidal [Unknown]
  - Dizziness [Unknown]
  - Panic attack [Unknown]
  - Cough [Unknown]
  - Somnolence [Unknown]
  - Hypoaesthesia [Unknown]
  - Food craving [Unknown]
  - Erectile dysfunction [Unknown]
  - Fatigue [Unknown]
  - Gout [Recovered/Resolved]
  - Myalgia [Unknown]
  - Dry mouth [Unknown]
  - Anxiety [Unknown]
  - Nasal congestion [Unknown]
  - Dyspnoea [Unknown]
